FAERS Safety Report 18910985 (Version 4)
Quarter: 2021Q3

REPORT INFORMATION
  Report Type: Spontaneous
  Country: US (occurrence: US)
  Receive Date: 20210218
  Receipt Date: 20210928
  Transmission Date: 20211014
  Serious: No
  Sender: FDA-Public Use
  Company Number: US-SA-2021SA047533

PATIENT
  Age: 40 Year
  Sex: Female

DRUGS (2)
  1. LANTUS SOLOSTAR [Suspect]
     Active Substance: INSULIN GLARGINE
     Indication: TYPE 2 DIABETES MELLITUS
     Dosage: 45 IU, QD
     Route: 065
  2. HUMALOG [Concomitant]
     Active Substance: INSULIN LISPRO
     Dosage: UNK
     Route: 065

REACTIONS (6)
  - Device mechanical issue [Unknown]
  - Drug dose omission by device [Unknown]
  - Injection site pain [Unknown]
  - Product storage error [Unknown]
  - COVID-19 [Unknown]
  - Hyperglycaemia [Unknown]

NARRATIVE: CASE EVENT DATE: 202101
